FAERS Safety Report 12570984 (Version 4)
Quarter: 2017Q4

REPORT INFORMATION
  Report Type: Report from Study
  Country: JP (occurrence: JP)
  Receive Date: 20160719
  Receipt Date: 20171220
  Transmission Date: 20180320
  Serious: Yes (Death, Hospitalization, Other)
  Sender: FDA-Public Use
  Company Number: JP-INCYTE CORPORATION-2016IN004147

PATIENT

DRUGS (1)
  1. JAKAVI [Suspect]
     Active Substance: RUXOLITINIB
     Indication: PRIMARY MYELOFIBROSIS
     Dosage: 5 MG, BID
     Route: 048
     Dates: start: 20141118, end: 20150102

REACTIONS (9)
  - Blood uric acid increased [Unknown]
  - Primary myelofibrosis [Fatal]
  - Haemoglobin decreased [Unknown]
  - Blood creatinine increased [Unknown]
  - Cardiac failure [Recovering/Resolving]
  - Dyspnoea exertional [Unknown]
  - Pulmonary congestion [Unknown]
  - Pulmonary hypertension [Unknown]
  - Pleural effusion [Unknown]
